FAERS Safety Report 22168939 (Version 2)
Quarter: 2023Q2

REPORT INFORMATION
  Report Type: Report from Study
  Country: ES (occurrence: ES)
  Receive Date: 20230403
  Receipt Date: 20230425
  Transmission Date: 20230722
  Serious: Yes (Death, Other)
  Sender: FDA-Public Use
  Company Number: ES-JNJFOC-20230373427

PATIENT

DRUGS (1)
  1. IMBRUVICA [Suspect]
     Active Substance: IBRUTINIB
     Indication: Chronic lymphocytic leukaemia
     Route: 048
     Dates: start: 20170120

REACTIONS (7)
  - Death [Fatal]
  - Cardiotoxicity [Fatal]
  - Gastrointestinal toxicity [Unknown]
  - Toxicity to various agents [Unknown]
  - Skin toxicity [Unknown]
  - Renal failure [Fatal]
  - Diarrhoea [Unknown]
